FAERS Safety Report 19795137 (Version 1)
Quarter: 2021Q3

REPORT INFORMATION
  Report Type: Spontaneous
  Country: US (occurrence: US)
  Receive Date: 20210906
  Receipt Date: 20210906
  Transmission Date: 20211014
  Serious: Yes (Life-Threatening, Other)
  Sender: FDA-Public Use
  Company Number: None

PATIENT

DRUGS (1)
  1. BARICITINIB. [Suspect]
     Active Substance: BARICITINIB
     Indication: COVID-19
     Route: 048
     Dates: start: 20210817, end: 20210824

REACTIONS (3)
  - Klebsiella test positive [None]
  - Urinary tract infection [None]
  - COVID-19 pneumonia [None]

NARRATIVE: CASE EVENT DATE: 20210825
